FAERS Safety Report 9852455 (Version 2)
Quarter: 2014Q1

REPORT INFORMATION
  Report Type: Spontaneous
  Country: US (occurrence: None)
  Receive Date: 20140127
  Receipt Date: 20140321
  Transmission Date: 20141002
  Serious: Yes (Other)
  Sender: FDA-Public Use
  Company Number: US-014414

PATIENT
  Age: 55 Year
  Sex: Female
  Weight: 63.05 kg

DRUGS (2)
  1. PICO-SALAX [Suspect]
     Indication: BOWEL PREPARATION
     Dosage: (FIRST DOSE: 3:00 PM. SECOND DOSE: 7:00PM ORAL)
     Route: 048
     Dates: start: 20131218, end: 20131218
  2. WELLBUTRIN [Concomitant]

REACTIONS (4)
  - Convulsion [None]
  - Fall [None]
  - Concussion [None]
  - Laceration [None]
